FAERS Safety Report 25009770 (Version 1)
Quarter: 2025Q1

REPORT INFORMATION
  Report Type: Spontaneous
  Country: US (occurrence: None)
  Receive Date: 20250225
  Receipt Date: 20250225
  Transmission Date: 20250408
  Serious: Yes (Hospitalization)
  Sender: FDA-CTU
  Company Number: None

PATIENT
  Age: 45 Year
  Sex: Female
  Weight: 66.8 kg

DRUGS (4)
  1. TARLATAMAB [Suspect]
     Active Substance: TARLATAMAB
     Indication: Neuroendocrine carcinoma
     Dosage: FREQUENCY : WEEKLY;?
     Route: 042
     Dates: start: 20250218
  2. TOCILIZUMAB [Concomitant]
     Active Substance: TOCILIZUMAB
  3. DEXAMETHASONE [Concomitant]
     Active Substance: DEXAMETHASONE
  4. ACETAMINOPHEN [Concomitant]
     Active Substance: ACETAMINOPHEN

REACTIONS (2)
  - Cytokine release syndrome [None]
  - Immune effector cell-associated neurotoxicity syndrome [None]

NARRATIVE: CASE EVENT DATE: 20250218
